FAERS Safety Report 4881752-3 (Version None)
Quarter: 2006Q1

REPORT INFORMATION
  Report Type: 
  Country: None (occurrence: None)
  Receive Date: 20060116
  Receipt Date: 20051108
  Transmission Date: 20060701
  Serious: Yes (Other)
  Sender: FDA-Public Use
  Company Number: GB-NOVOPROD-248470

PATIENT
  Age: 67 Year
  Sex: Male
  Weight: 77 kg

DRUGS (3)
  1. NOVOSEVEN [Suspect]
     Indication: CARDIAC OPERATION
     Dosage: 90 UG/KG, UNK
     Dates: start: 20050712
  2. NOVOSEVEN [Suspect]
     Dates: start: 20050712
  3. APROTININ [Concomitant]
     Dosage: UNK, UNK
     Dates: start: 20050712

REACTIONS (2)
  - ATRIAL THROMBOSIS [None]
  - THROMBOSIS IN DEVICE [None]
